FAERS Safety Report 5076169-5 (Version None)
Quarter: 2006Q3

REPORT INFORMATION
  Report Type: 
  Country: None (occurrence: None)
  Receive Date: 20060725
  Receipt Date: 20060511
  Transmission Date: 20061208
  Serious: No
  Sender: FDA-Public Use
  Company Number: 200610844BWH

PATIENT
  Age: 80 Year
  Sex: Male
  Weight: 71.2147 kg

DRUGS (9)
  1. NEXAVAR [Suspect]
     Indication: RENAL CELL CARCINOMA STAGE UNSPECIFIED
     Dosage: 400 MG, BID, ORAL
     Route: 048
     Dates: start: 20060202
  2. LISINOPRIL [Concomitant]
  3. HYDROCHLOROTHIAZIDE [Concomitant]
  4. EYE DROPS [Concomitant]
  5. MULTI-VITAMIN [Concomitant]
  6. ASPIRIN [Concomitant]
  7. FOSINOPRIL SODIUM [Concomitant]
  8. COUMADIN [Concomitant]
  9. TIMOLOL MALEATE [Concomitant]

REACTIONS (9)
  - ALOPECIA [None]
  - ANOREXIA [None]
  - DIARRHOEA [None]
  - DYSGEUSIA [None]
  - DYSPHONIA [None]
  - FATIGUE [None]
  - ORAL MUCOSAL BLISTERING [None]
  - RESPIRATORY RATE INCREASED [None]
  - WEIGHT DECREASED [None]
